FAERS Safety Report 4984872-8 (Version None)
Quarter: 2006Q2

REPORT INFORMATION
  Report Type: 
  Country: None (occurrence: None)
  Receive Date: 20060427
  Receipt Date: 20060418
  Transmission Date: 20061013
  Serious: Yes (Hospitalization)
  Sender: FDA-Public Use
  Company Number: US-ROCHE-444954

PATIENT
  Age: 42 Year
  Sex: Male

DRUGS (2)
  1. VESANOID [Suspect]
     Route: 048
     Dates: start: 20060315, end: 20060415
  2. GENTAMICIN [Suspect]
     Route: 065
     Dates: start: 20060415, end: 20060415

REACTIONS (2)
  - FEBRILE NEUTROPENIA [None]
  - RENAL FAILURE ACUTE [None]
